FAERS Safety Report 21316623 (Version 1)
Quarter: 2022Q3

REPORT INFORMATION
  Report Type: Spontaneous
  Country: US (occurrence: US)
  Receive Date: 20220911
  Receipt Date: 20220911
  Transmission Date: 20221027
  Serious: No
  Sender: FDA-Public Use
  Company Number: US-SA-SAC20220817001455

PATIENT
  Sex: Male

DRUGS (1)
  1. DUPIXENT [Suspect]
     Active Substance: DUPILUMAB
     Indication: Dermatitis allergic
     Dosage: UNK, QOW
     Route: 058

REACTIONS (3)
  - Eczema [Unknown]
  - Product dose omission issue [Unknown]
  - Product use in unapproved indication [Unknown]
